FAERS Safety Report 19974326 (Version 1)
Quarter: 2021Q4

REPORT INFORMATION
  Report Type: Spontaneous
  Country: US (occurrence: US)
  Receive Date: 20211020
  Receipt Date: 20211020
  Transmission Date: 20220303
  Serious: Yes (Hospitalization)
  Sender: FDA-Public Use
  Company Number: US-GW PHARMA-202110USGW04892

PATIENT

DRUGS (1)
  1. EPIDIOLEX [Suspect]
     Active Substance: CANNABIDIOL
     Indication: Lennox-Gastaut syndrome
     Dosage: 10.18 MG/KG/DAY, 150 MILLIGRAM, BID
     Route: 048
     Dates: start: 20210831

REACTIONS (2)
  - COVID-19 [Unknown]
  - Seizure [Unknown]

NARRATIVE: CASE EVENT DATE: 20210927
